FAERS Safety Report 7393811-4 (Version None)
Quarter: 2011Q1

REPORT INFORMATION
  Report Type: 
  Country: None (occurrence: None)
  Receive Date: 20110330
  Receipt Date: 20110330
  Transmission Date: 20110831
  Serious: Yes (Other)
  Sender: FDA-Public Use
  Company Number: None

PATIENT
  Sex: Female
  Weight: 18.5975 kg

DRUGS (2)
  1. ALLER-TEC 5MG KIRKLAND SIGNATURE [Suspect]
     Indication: SEASONAL ALLERGY
     Dosage: 3/4 TSO 1 TIME PER DAY PO
     Route: 048
     Dates: start: 20100307, end: 20100531
  2. ALLER-TEC 5MG KIRKLAND SIGNATURE [Suspect]
     Indication: SEASONAL ALLERGY
     Dosage: 3/4 TSO 1 TIME PER DAY PO
     Route: 048
     Dates: start: 20110307, end: 20110321

REACTIONS (4)
  - LETHARGY [None]
  - UNRESPONSIVE TO STIMULI [None]
  - CRYING [None]
  - POSTURE ABNORMAL [None]
